FAERS Safety Report 13139039 (Version 1)
Quarter: 2017Q1

REPORT INFORMATION
  Report Type: Spontaneous
  Country: US (occurrence: US)
  Receive Date: 20170123
  Receipt Date: 20170123
  Transmission Date: 20170428
  Serious: No
  Sender: FDA-Public Use
  Company Number: US-ASTRAZENECA-2017SE05454

PATIENT
  Age: 701 Month
  Sex: Female

DRUGS (1)
  1. FASLODEX [Suspect]
     Active Substance: FULVESTRANT
     Indication: LUNG NEOPLASM MALIGNANT
     Dosage: 2 INJECTIONS, ONE INTRAMUSCULAR INJECTION INTO EACH BUTTOCK MONTHLY
     Route: 030

REACTIONS (3)
  - Product use issue [Unknown]
  - Injection site pain [Unknown]
  - Off label use [Unknown]

NARRATIVE: CASE EVENT DATE: 201612
